FAERS Safety Report 6982949-9 (Version None)
Quarter: 2010Q3

REPORT INFORMATION
  Report Type: 
  Country: None (occurrence: None)
  Receive Date: 20100914
  Receipt Date: 20100503
  Transmission Date: 20110219
  Serious: Yes (Hospitalization)
  Sender: FDA-Public Use
  Company Number: US-PFIZER INC-2010044802

PATIENT
  Sex: Female

DRUGS (2)
  1. LYRICA [Suspect]
     Indication: NEURALGIA
     Dosage: UNK
     Dates: end: 20100301
  2. DILAUDID [Concomitant]
     Dosage: UNK

REACTIONS (4)
  - DYSKINESIA [None]
  - MYOCLONUS [None]
  - OVERDOSE [None]
  - TREMOR [None]
